FAERS Safety Report 7676998-5 (Version None)
Quarter: 2011Q3

REPORT INFORMATION
  Report Type: 
  Country: None (occurrence: None)
  Receive Date: 20110808
  Receipt Date: 20110727
  Transmission Date: 20111222
  Serious: Yes (Hospitalization)
  Sender: FDA-Public Use
  Company Number: 1000021240

PATIENT
  Age: 83 Year
  Sex: Female

DRUGS (16)
  1. ATORVASTATIN CALCIUM [Concomitant]
  2. MEMANTINE HYDROCHLORIDE [Suspect]
     Dosage: 5 MG (10 MG, 1 IN 2 D)
     Dates: end: 20110426
  3. IMOVANE (ZOPICLONE) [Suspect]
     Dosage: 1 DOSAGE FORM (1 DOSAGE FORMS, 1 IN 1 D),ORAL
     Route: 048
     Dates: start: 20070101, end: 20110325
  4. EXELON [Suspect]
     Dosage: 9.5 MG (9.5 MG,L IN 1 D),TRANSDERMAL
     Route: 062
     Dates: start: 20110410, end: 20110414
  5. EXELON [Suspect]
     Dosage: 9.5 MG (9.5 MG,L IN 1 D),TRANSDERMAL
     Route: 062
     Dates: start: 20090817, end: 20110406
  6. POTASSIUM CHLORIDE [Suspect]
     Dosage: 1 DOSAGE FORM (1 DOSAGE FORMS, 1 IN 1 D),ORAL
     Route: 048
     Dates: start: 20070101, end: 20110325
  7. MEMANTINE HYDROCHLORIDE [Suspect]
     Dates: start: 20110420
  8. FUROSEMIDE [Suspect]
     Dosage: 20 MG), ORAL
     Route: 048
     Dates: start: 20080101, end: 20110316
  9. LANTUS(INSULIN GLARGINE) (INSULIN GLARGINE) [Concomitant]
  10. HUMALOG [Concomitant]
  11. UVEDOSE (COLECALCIFEROL)(COLECALCIFEROL) [Concomitant]
  12. IMOVANE (ZOPICLONE) [Suspect]
     Dosage: 1 DOSAGE FORM (1 DOSAGE FORMS, 1N 1 D),ORAL
     Route: 048
     Dates: start: 20080101, end: 20110316
  13. INIPOMP (PANTOPRAZOLE) (PANTOPRAZOLE) [Concomitant]
  14. MODOPAR (LEVODOPA, BENSERAZIDE HYDROCHLORIDE) [Suspect]
     Dosage: 500 MG (125 MG, 4 IN 1 D), ORAL
     Route: 048
     Dates: start: 20070101
  15. OROCAL D3 (CALCIUM CARBONATE, COLECALCIFEROL)(CALCIUM CARBONATE, COLEC [Concomitant]
  16. KARDEGIC (ACETYLSALICYLATE LYSINE) (ACETYLSALICYLATE LYSINE) [Concomitant]

REACTIONS (13)
  - PANCREATITIS ACUTE [None]
  - URINARY RETENTION [None]
  - CEREBRAL ATROPHY [None]
  - RENAL FAILURE [None]
  - BLOOD SODIUM INCREASED [None]
  - DEHYDRATION [None]
  - APHASIA [None]
  - CANDIDIASIS [None]
  - BLOOD POTASSIUM INCREASED [None]
  - CYTOLYTIC HEPATITIS [None]
  - SOMNOLENCE [None]
  - VAGINAL INFECTION [None]
  - INFLAMMATION [None]
